FAERS Safety Report 9009127 (Version 1)
Quarter: 2013Q1

REPORT INFORMATION
  Report Type: Spontaneous
  Country: US (occurrence: US)
  Receive Date: 20130111
  Receipt Date: 20130111
  Transmission Date: 20140127
  Serious: No
  Sender: FDA-Public Use
  Company Number: US-GLAXOSMITHKLINE-A1003063A

PATIENT
  Age: 69 Year
  Sex: Male
  Weight: 75.9 kg

DRUGS (1)
  1. JALYN [Suspect]
     Indication: PRODUCT USED FOR UNKNOWN INDICATION
     Dosage: 1CAP PER DAY
     Route: 048
     Dates: start: 201201, end: 20121020

REACTIONS (4)
  - Hypersensitivity [Recovered/Resolved]
  - Pruritus [Unknown]
  - Rash [Unknown]
  - Dermatitis herpetiformis [Unknown]
